FAERS Safety Report 7870228-7 (Version None)
Quarter: 2011Q4

REPORT INFORMATION
  Report Type: 
  Country: None (occurrence: None)
  Receive Date: 20111028
  Receipt Date: 20110117
  Transmission Date: 20120403
  Serious: No
  Sender: FDA-Public Use
  Company Number: US-AMGEN-USASP2011003055

PATIENT
  Age: 59 Year
  Sex: Female

DRUGS (1)
  1. ENBREL [Suspect]
     Indication: PSORIASIS
     Dosage: 50 MG, 2 TIMES/WK
     Dates: start: 20070403, end: 20101101

REACTIONS (5)
  - DYSURIA [None]
  - DEHYDRATION [None]
  - URINARY TRACT INFECTION [None]
  - INFECTION [None]
  - PSORIASIS [None]
